FAERS Safety Report 17345515 (Version 3)
Quarter: 2020Q1

REPORT INFORMATION
  Report Type: Report from Study
  Country: CA (occurrence: CA)
  Receive Date: 20200129
  Receipt Date: 20200305
  Transmission Date: 20200409
  Serious: Yes (Hospitalization, Other)
  Sender: FDA-Public Use
  Company Number: CA-TAKEDA-2017TUS023085

PATIENT
  Age: 55 Year
  Sex: Male

DRUGS (16)
  1. COLCHICINE. [Concomitant]
     Active Substance: COLCHICINE
     Dosage: UNK
  2. HYDROMORPHONE [Concomitant]
     Active Substance: HYDROMORPHONE
     Dosage: UNK
  3. ZOPLICONE [Concomitant]
     Active Substance: ZOPICLONE
     Dosage: UNK
  4. VEDOLIZUMAB [Suspect]
     Active Substance: VEDOLIZUMAB
     Dosage: 300 MILLIGRAM
     Route: 042
  5. GABAPENTIN. [Concomitant]
     Active Substance: GABAPENTIN
     Dosage: UNK
  6. FUROSEMIDE. [Concomitant]
     Active Substance: FUROSEMIDE
     Dosage: UNK
  7. VEDOLIZUMAB [Suspect]
     Active Substance: VEDOLIZUMAB
     Dosage: 300 MILLIGRAM
     Route: 042
     Dates: start: 20180205
  8. VEDOLIZUMAB [Suspect]
     Active Substance: VEDOLIZUMAB
     Dosage: 300 MILLIGRAM
     Route: 042
  9. PROPANOLOL                         /00030001/ [Concomitant]
     Active Substance: PROPRANOLOL HYDROCHLORIDE
     Dosage: UNK
  10. BUPROPION. [Concomitant]
     Active Substance: BUPROPION
     Dosage: UNK
  11. PANTOPRAZOLE [Concomitant]
     Active Substance: PANTOPRAZOLE
     Dosage: UNK
  12. VEDOLIZUMAB [Suspect]
     Active Substance: VEDOLIZUMAB
     Dosage: 300 MILLIGRAM
     Route: 042
  13. SPIRONOLACTONE. [Concomitant]
     Active Substance: SPIRONOLACTONE
     Dosage: UNK
  14. POTASSIUM [Concomitant]
     Active Substance: POTASSIUM
     Dosage: UNK
  15. VEDOLIZUMAB [Suspect]
     Active Substance: VEDOLIZUMAB
     Indication: CROHN^S DISEASE
     Dosage: 300 MILLIGRAM
     Route: 042
     Dates: start: 20170713
  16. VEDOLIZUMAB [Suspect]
     Active Substance: VEDOLIZUMAB
     Dosage: 300 MILLIGRAM
     Route: 042

REACTIONS (20)
  - Faecal calprotectin increased [Unknown]
  - Hospitalisation [Not Recovered/Not Resolved]
  - Polymyalgia rheumatica [Unknown]
  - Chills [Not Recovered/Not Resolved]
  - Off label use [Unknown]
  - Pneumonia aspiration [Unknown]
  - Gastrointestinal fistula [Unknown]
  - Infusion site extravasation [Unknown]
  - Sepsis [Unknown]
  - Skin irritation [Unknown]
  - Intestinal resection [Unknown]
  - Liver disorder [Unknown]
  - Malaise [Not Recovered/Not Resolved]
  - Gastrointestinal stoma output increased [Not Recovered/Not Resolved]
  - Platelet count decreased [Unknown]
  - Fistula [Not Recovered/Not Resolved]
  - Poor venous access [Not Recovered/Not Resolved]
  - Gastroenteritis viral [Recovered/Resolved]
  - Splenomegaly [Unknown]
  - Diabetes mellitus [Unknown]

NARRATIVE: CASE EVENT DATE: 2017
